FAERS Safety Report 5473629-X (Version None)
Quarter: 2007Q3

REPORT INFORMATION
  Report Type: 
  Country: None (occurrence: None)
  Receive Date: 20070831
  Receipt Date: 20070416
  Transmission Date: 20080115
  Serious: No
  Sender: FDA-Public Use
  Company Number: 240385

PATIENT
  Sex: Male

DRUGS (3)
  1. LUCENTIS [Suspect]
     Indication: OCULAR VASCULAR DISORDER
     Dates: start: 20061101
  2. VITAMINS (VITAMINS NOS) [Concomitant]
  3. XALATAN EYE GTTS. [Concomitant]

REACTIONS (1)
  - FOREIGN BODY SENSATION IN EYES [None]
